FAERS Safety Report 25038922 (Version 3)
Quarter: 2025Q2

REPORT INFORMATION
  Report Type: Report from Study
  Country: US (occurrence: US)
  Receive Date: 20250305
  Receipt Date: 20250417
  Transmission Date: 20250716
  Serious: Yes (Hospitalization)
  Sender: BOEHRINGER INGELHEIM
  Company Number: US-BoehringerIngelheim-2024-BI-045746

PATIENT
  Sex: Male

DRUGS (2)
  1. OFEV [Suspect]
     Active Substance: NINTEDANIB
     Indication: Pulmonary fibrosis
  2. OFEV [Suspect]
     Active Substance: NINTEDANIB

REACTIONS (11)
  - Critical illness [Unknown]
  - Infection [Unknown]
  - Ulcer haemorrhage [Unknown]
  - Blood sodium decreased [Recovered/Resolved]
  - Vomiting [Recovering/Resolving]
  - Disorientation [Recovering/Resolving]
  - Decreased appetite [Unknown]
  - Hypophagia [Unknown]
  - Fatigue [Recovering/Resolving]
  - Nausea [Recovering/Resolving]
  - Dizziness [Recovering/Resolving]
